FAERS Safety Report 10216049 (Version 1)
Quarter: 2014Q2

REPORT INFORMATION
  Report Type: Spontaneous
  Country: US (occurrence: None)
  Receive Date: 20140603
  Receipt Date: 20140603
  Transmission Date: 20141212
  Serious: Yes (Disabling)
  Sender: FDA-Public Use
  Company Number: None

PATIENT
  Age: 45 Year
  Sex: Female
  Weight: 63.5 kg

DRUGS (1)
  1. LUMIGAN .01% ALLERGAN [Suspect]
     Indication: GLAUCOMA
     Route: 047
     Dates: start: 20140307, end: 20140411

REACTIONS (7)
  - Hypersensitivity [None]
  - Visual impairment [None]
  - Ocular hyperaemia [None]
  - Vision blurred [None]
  - Metamorphopsia [None]
  - Dry eye [None]
  - Blepharitis [None]
